FAERS Safety Report 20360448 (Version 6)
Quarter: 2022Q2

REPORT INFORMATION
  Report Type: Spontaneous
  Country: JP (occurrence: JP)
  Receive Date: 20220121
  Receipt Date: 20220607
  Transmission Date: 20220721
  Serious: Yes (Hospitalization, Other)
  Sender: FDA-Public Use
  Company Number: JP-BRISTOL-MYERS SQUIBB COMPANY-BMS-2022-008354

PATIENT
  Age: 73 Year
  Sex: Male
  Weight: 53 kg

DRUGS (16)
  1. YERVOY [Suspect]
     Active Substance: IPILIMUMAB
     Indication: Non-small cell lung cancer recurrent
     Dosage: 55.8 MG
     Route: 041
     Dates: start: 20211126, end: 20211126
  2. OPDIVO [Suspect]
     Active Substance: NIVOLUMAB
     Indication: Non-small cell lung cancer recurrent
     Dosage: 360 MG
     Route: 041
     Dates: start: 20211126, end: 20211217
  3. OPDIVO [Suspect]
     Active Substance: NIVOLUMAB
     Route: 041
     Dates: start: 20211217, end: 20211217
  4. CARBOPLATIN [Suspect]
     Active Substance: CARBOPLATIN
     Indication: Non-small cell lung cancer recurrent
     Dosage: 466 MG
     Route: 041
     Dates: start: 20211126, end: 20211126
  5. CARBOPLATIN [Suspect]
     Active Substance: CARBOPLATIN
     Dosage: UNK
     Route: 041
     Dates: start: 20211217, end: 20211217
  6. PEMETREXED [Suspect]
     Active Substance: PEMETREXED
     Indication: Non-small cell lung cancer
     Dosage: 778 MG
     Route: 041
     Dates: start: 20211126, end: 20211126
  7. PEMETREXED [Suspect]
     Active Substance: PEMETREXED
     Indication: Non-small cell lung cancer recurrent
     Route: 041
     Dates: start: 20211217, end: 20211217
  8. DEXTROMETHORPHAN HYDROBROMIDE [Concomitant]
     Active Substance: DEXTROMETHORPHAN HYDROBROMIDE
     Indication: Product used for unknown indication
     Dosage: 15 MG, Q8H
     Route: 048
     Dates: start: 20211104, end: 20211228
  9. PANVITAN [VITAMINS NOS] [Concomitant]
     Indication: Product used for unknown indication
     Route: 048
     Dates: start: 20211118
  10. CODEINE [Concomitant]
     Active Substance: CODEINE
     Indication: Product used for unknown indication
     Route: 048
     Dates: start: 20211111, end: 20211217
  11. HEPARINOIDE [Concomitant]
     Indication: Product used for unknown indication
     Route: 065
  12. RINDERON VG [Concomitant]
     Active Substance: BETAMETHASONE VALERATE\GENTAMICIN SULFATE
     Indication: Product used for unknown indication
     Route: 065
  13. RINDERON VG [Concomitant]
     Active Substance: BETAMETHASONE VALERATE\GENTAMICIN SULFATE
     Dosage: APPROPRIATE DOSAGE, Q12H
     Route: 061
  14. OLOPATADINE [Concomitant]
     Active Substance: OLOPATADINE
     Indication: Product used for unknown indication
     Route: 048
  15. CANAGLIFLOZIN\TENELIGLIPTIN [Concomitant]
     Active Substance: CANAGLIFLOZIN\TENELIGLIPTIN
     Indication: Product used for unknown indication
     Route: 048
  16. CANAGLIFLOZIN\TENELIGLIPTIN [Concomitant]
     Active Substance: CANAGLIFLOZIN\TENELIGLIPTIN
     Dosage: 1 DF, EVERYDAY
     Route: 048

REACTIONS (6)
  - Cellulitis [Recovering/Resolving]
  - Erythema multiforme [Recovered/Resolved]
  - Skin infection [Recovered/Resolved]
  - Febrile neutropenia [Recovered/Resolved]
  - Skin disorder [Unknown]
  - Rash pustular [Recovered/Resolved]

NARRATIVE: CASE EVENT DATE: 20211208
